FAERS Safety Report 6457586-5 (Version None)
Quarter: 2009Q4

REPORT INFORMATION
  Report Type: 
  Country: None (occurrence: None)
  Receive Date: 20091125
  Receipt Date: 20091123
  Transmission Date: 20100525
  Serious: Yes (Death)
  Sender: FDA-Public Use
  Company Number: PHHY2009DE31038

PATIENT
  Sex: Male
  Weight: 100 kg

DRUGS (3)
  1. ZOMETA [Suspect]
     Indication: PROSTATE CANCER
     Dosage: 2 MG, UNK
     Route: 042
     Dates: start: 20060104
  2. ZOMETA [Suspect]
     Dosage: 4 MG, QMO
     Route: 042
     Dates: start: 20070101
  3. ZOMETA [Suspect]
     Dosage: 2 MG, UNK
     Route: 042
     Dates: end: 20090623

REACTIONS (2)
  - HYPERPHOSPHATAEMIA [None]
  - RENAL FAILURE ACUTE [None]
